FAERS Safety Report 13703177 (Version 1)
Quarter: 2017Q2

REPORT INFORMATION
  Report Type: Spontaneous
  Country: US (occurrence: US)
  Receive Date: 20170629
  Receipt Date: 20170629
  Transmission Date: 20170830
  Serious: No
  Sender: FDA-Public Use
  Company Number: GXBR2017US001653

PATIENT
  Sex: Female

DRUGS (1)
  1. BIMATOPROST. [Suspect]
     Active Substance: BIMATOPROST
     Indication: EYELASH THICKENING
     Dosage: 1 GTT, QHS
     Route: 065
     Dates: start: 20170410, end: 20170505

REACTIONS (2)
  - Instillation site pruritus [Unknown]
  - Instillation site erythema [Unknown]
